FAERS Safety Report 10249084 (Version 1)
Quarter: 2014Q2

REPORT INFORMATION
  Report Type: Spontaneous
  Country: US (occurrence: None)
  Receive Date: 20140619
  Receipt Date: 20140619
  Transmission Date: 20141212
  Serious: No
  Sender: FDA-Public Use
  Company Number: None

PATIENT
  Age: 48 Year
  Sex: Female
  Weight: 83.92 kg

DRUGS (2)
  1. ICYHOT MEDICATED [Suspect]
     Indication: INJURY
     Dosage: AS NEEDED FOUR TIMES DAILY APPLIED TO A SURFACE, USUALLY THE SKIN
     Dates: start: 20140617, end: 20140617
  2. ICYHOT MEDICATED [Suspect]
     Indication: EPICONDYLITIS
     Dosage: AS NEEDED FOUR TIMES DAILY APPLIED TO A SURFACE, USUALLY THE SKIN
     Dates: start: 20140617, end: 20140617

REACTIONS (3)
  - Application site erythema [None]
  - Application site pain [None]
  - Application site pain [None]
